FAERS Safety Report 10474742 (Version 8)
Quarter: 2015Q3

REPORT INFORMATION
  Report Type: Spontaneous
  Country: US (occurrence: US)
  Receive Date: 20140925
  Receipt Date: 20150916
  Transmission Date: 20151125
  Serious: Yes (Other)
  Sender: FDA-Public Use
  Company Number: US-009507513-1409USA005120

PATIENT
  Age: 59 Year
  Sex: Male
  Weight: 82.54 kg

DRUGS (7)
  1. ZOCOR [Suspect]
     Active Substance: SIMVASTATIN
     Indication: PRODUCT USED FOR UNKNOWN INDICATION
     Dosage: 20 MG, QD
     Route: 048
     Dates: start: 20080807, end: 200908
  2. SIMVASTATIN TABLETS, USP [Suspect]
     Active Substance: SIMVASTATIN
     Indication: PRODUCT USED FOR UNKNOWN INDICATION
     Dosage: 10 MG, HS
     Route: 048
     Dates: start: 20090929, end: 200910
  3. SIMVASTATIN. [Suspect]
     Active Substance: SIMVASTATIN
     Indication: PRODUCT USED FOR UNKNOWN INDICATION
     Dosage: 10 MG, QD
     Route: 048
     Dates: start: 20070113, end: 20070512
  4. SIMVASTATIN. [Suspect]
     Active Substance: SIMVASTATIN
     Dosage: 20 MG, QD
     Route: 048
     Dates: start: 20070518
  5. SIMVASTATIN. [Suspect]
     Active Substance: SIMVASTATIN
     Dosage: 20 MG, QD
     Route: 048
     Dates: start: 20090824, end: 200909
  6. SIMVASTATIN. [Suspect]
     Active Substance: SIMVASTATIN
     Dosage: 10 MG, QD
     Route: 048
     Dates: start: 20090901, end: 200909
  7. ASPIRIN. [Concomitant]
     Active Substance: ASPIRIN

REACTIONS (32)
  - Musculoskeletal pain [Not Recovered/Not Resolved]
  - Insomnia [Not Recovered/Not Resolved]
  - Back pain [Not Recovered/Not Resolved]
  - Periarthritis [Unknown]
  - Rotator cuff syndrome [Not Recovered/Not Resolved]
  - Blood bilirubin increased [Recovered/Resolved]
  - Hepatic enzyme increased [Not Recovered/Not Resolved]
  - Exostosis [Unknown]
  - Bone cyst [Unknown]
  - Claustrophobia [Unknown]
  - Joint range of motion decreased [Unknown]
  - Hepatomegaly [Unknown]
  - Syndesmophyte [Unknown]
  - Cerebral disorder [Unknown]
  - Musculoskeletal chest pain [Not Recovered/Not Resolved]
  - Myalgia [Not Recovered/Not Resolved]
  - Blood cholesterol increased [Unknown]
  - Abdominal pain [Unknown]
  - Asthenia [Unknown]
  - Muscle mass [Unknown]
  - Fibromyalgia [Not Recovered/Not Resolved]
  - Spinal pain [Unknown]
  - Renal cyst [Unknown]
  - Deafness [Unknown]
  - Tendonitis [Unknown]
  - Periarthritis [Unknown]
  - Neck pain [Unknown]
  - Temperature intolerance [Unknown]
  - Osteoarthritis [Unknown]
  - Muscle spasms [Unknown]
  - Gastric ulcer [Unknown]
  - Musculoskeletal pain [Unknown]

NARRATIVE: CASE EVENT DATE: 2007
